FAERS Safety Report 9265080 (Version 1)
Quarter: 2013Q2

REPORT INFORMATION
  Report Type: Report from Study
  Country: JP (occurrence: JP)
  Receive Date: 20130501
  Receipt Date: 20130501
  Transmission Date: 20140414
  Serious: Yes (Other)
  Sender: FDA-Public Use
  Company Number: JP-ASTELLAS-2012JP004162

PATIENT
  Age: 54 Year
  Sex: Female
  Weight: 44.5 kg

DRUGS (12)
  1. TACROLIMUS CAPSULES [Suspect]
     Indication: LUPUS NEPHRITIS
     Dosage: 1 MG, UNKNOWN/D
     Route: 048
     Dates: start: 20130417
  2. TACROLIMUS CAPSULES [Suspect]
     Indication: SYSTEMIC LUPUS ERYTHEMATOSUS
     Dosage: 2 MG, UNKNOWN/D
     Route: 048
     Dates: start: 20090401, end: 20090421
  3. TACROLIMUS CAPSULES [Suspect]
     Dosage: 1.5 MG, UNKNOWN/D
     Route: 048
     Dates: start: 20090422, end: 20091014
  4. TACROLIMUS CAPSULES [Suspect]
     Dosage: 2 MG, UNKNOWN/D
     Route: 048
     Dates: start: 20091015, end: 20100825
  5. TACROLIMUS CAPSULES [Suspect]
     Dosage: 1.5 MG, UNKNOWN/D
     Route: 048
     Dates: start: 20100826, end: 20111116
  6. TACROLIMUS CAPSULES [Suspect]
     Dosage: 1 MG, UNKNOWN/D
     Route: 048
     Dates: start: 20111117, end: 20120717
  7. TACROLIMUS CAPSULES [Suspect]
     Dosage: 0.5 MG, UNKNOWN/D
     Route: 048
     Dates: start: 20120718, end: 20130416
  8. PREDNISOLONE [Concomitant]
     Indication: LUPUS NEPHRITIS
     Dosage: 5 MG, UNKNOWN/D
     Route: 048
     Dates: end: 20121116
  9. PREDNISOLONE [Concomitant]
     Dosage: 3 MG, UNKNOWN/D
     Route: 048
     Dates: start: 20121117
  10. MERCAZOLE [Concomitant]
     Indication: HYPERTHYROIDISM
     Dosage: 7.5 MG, UNKNOWN/D
     Route: 048
  11. BENET [Concomitant]
     Indication: PROPHYLAXIS
     Dosage: 2.5 MG, UNKNOWN/D
     Route: 048
     Dates: end: 20110824
  12. ALFAROL [Concomitant]
     Indication: PROPHYLAXIS
     Dosage: 0.25 UG, UNKNOWN/D
     Route: 048
     Dates: start: 20110825

REACTIONS (2)
  - Systemic lupus erythematosus [Unknown]
  - Liver disorder [Recovered/Resolved]
